FAERS Safety Report 15334284 (Version 10)
Quarter: 2022Q2

REPORT INFORMATION
  Report Type: Spontaneous
  Country: US (occurrence: US)
  Receive Date: 20180830
  Receipt Date: 20220616
  Transmission Date: 20220721
  Serious: No
  Sender: FDA-Public Use
  Company Number: US-PFIZER INC-2018346450

PATIENT
  Age: 83 Year
  Sex: Male

DRUGS (7)
  1. LYRICA [Suspect]
     Active Substance: PREGABALIN
     Dosage: 200 MG, 1X/DAY(200 MG CAPSULE TAKE 1 BY ORAL ROUTE EVERY MORNING)
     Route: 048
  2. LYRICA [Suspect]
     Active Substance: PREGABALIN
     Dosage: 75 MG (75 MG CAPSULE 1-2 CAP BY MOUTH AT BEDTIME)
     Route: 048
  3. LYRICA [Suspect]
     Active Substance: PREGABALIN
     Dosage: 200 MG, 1X/DAY IN THE MORNING/SIG: 1 PO Q AM
     Route: 048
  4. LYRICA [Suspect]
     Active Substance: PREGABALIN
     Dosage: 75 MG, AS NEEDED (1-2 CAPSULE BY MOUTH AT BEDTIME AS NEEDED)
     Route: 048
  5. LYRICA [Suspect]
     Active Substance: PREGABALIN
     Dosage: 75 MG, (1-2 CAP AT BEDTIME/SIG: 1-2 TABS PO HS)
     Route: 048
  6. LYRICA [Suspect]
     Active Substance: PREGABALIN
     Dosage: 475 MG, UNK (2 200MG^S HE JUST TAKES ANOTHER 75 MG)
  7. LYRICA [Suspect]
     Active Substance: PREGABALIN
     Dosage: 200 MG 1 CAP EVERY MORNING THEN 75 MG 1-2 CAPS AT BEDTIME
     Route: 048

REACTIONS (4)
  - Intentional product use issue [Unknown]
  - Pain [Unknown]
  - Visual impairment [Unknown]
  - Hypoacusis [Unknown]
